FAERS Safety Report 25534587 (Version 1)
Quarter: 2025Q3

REPORT INFORMATION
  Report Type: Spontaneous
  Country: EU (occurrence: EU)
  Receive Date: 20250709
  Receipt Date: 20250709
  Transmission Date: 20251020
  Serious: Yes (Death)
  Sender: FRESENIUS KABI
  Company Number: None

PATIENT
  Age: 67 Year
  Sex: Female

DRUGS (17)
  1. PIPERACILLIN SODIUM\TAZOBACTAM SODIUM [Suspect]
     Active Substance: PIPERACILLIN SODIUM\TAZOBACTAM SODIUM
     Indication: Product used for unknown indication
     Dates: start: 20250305, end: 20250314
  2. PIPERACILLIN SODIUM\TAZOBACTAM SODIUM [Suspect]
     Active Substance: PIPERACILLIN SODIUM\TAZOBACTAM SODIUM
     Dates: start: 20250504, end: 20250519
  3. KEYTRUDA [Suspect]
     Active Substance: PEMBROLIZUMAB
     Indication: Ovarian neoplasm
     Route: 042
     Dates: start: 20250417, end: 20250417
  4. KEYTRUDA [Suspect]
     Active Substance: PEMBROLIZUMAB
     Indication: Peritoneal neoplasm
  5. CARBOPLATIN [Suspect]
     Active Substance: CARBOPLATIN
     Indication: Product used for unknown indication
     Dates: start: 20250201, end: 20250201
  6. CARBOPLATIN [Suspect]
     Active Substance: CARBOPLATIN
     Dates: start: 2025, end: 2025
  7. CARBOPLATIN [Suspect]
     Active Substance: CARBOPLATIN
     Dates: start: 20250417, end: 20250417
  8. Euthyrox Film-coated tablets 100mcg [Concomitant]
     Indication: Product used for unknown indication
     Dosage: 1-0-0-0?FOA: TABLET
     Route: 048
  9. Pantoloc Film-coated tablets 40mg [Concomitant]
     Indication: Product used for unknown indication
     Dosage: 1-0-0-0?FOA: FILM COATED TABLET
     Route: 048
  10. Sertralin 1A Film-coated tablets 50mg [Concomitant]
     Indication: Product used for unknown indication
     Dosage: 1-0-0-0?FOA: FILM COATED TABLET
     Route: 048
  11. Xarelto Film-coated tablets 20mg [Concomitant]
     Indication: Product used for unknown indication
     Dosage: 1-0-0-0?FOA: FILM COATED TABLET
     Route: 048
  12. Rosuvastatin + Ph Film-coated tablets 20mg [Concomitant]
     Indication: Product used for unknown indication
     Dosage: 0-0-1-0?FOA: FILM COATED TABLET
     Route: 048
  13. Lyrica hard capsules 75mg [Concomitant]
     Indication: Product used for unknown indication
     Dosage: 1-0-2-0?FOA: HARD CAPSUL
     Route: 048
  14. Novalgin drops 50mg [Concomitant]
     Indication: Product used for unknown indication
     Dosage: 40-40-40-0  GTT?FOA: ORAL DROP
     Route: 048
  15. Synjardy Film-coated tablets 12.5/1000mg [Concomitant]
     Indication: Product used for unknown indication
     Dosage: 1-0-0-1?FOA: FILM COATED TABLET
     Route: 048
  16. Tresiba 100E/ml Penfill, 3ml [Concomitant]
     Indication: Product used for unknown indication
     Dosage: 20IE-0-0-0
  17. Novorapid 100E/ml Penfill, 3ml [Concomitant]
     Indication: Product used for unknown indication

REACTIONS (1)
  - Cholestatic liver injury [Fatal]
